FAERS Safety Report 24214133 (Version 1)
Quarter: 2024Q3

REPORT INFORMATION
  Report Type: Spontaneous
  Country: US (occurrence: None)
  Receive Date: 20240814
  Receipt Date: 20240814
  Transmission Date: 20241017
  Serious: Yes (Other)
  Sender: Public
  Company Number: None

PATIENT
  Age: 65 Year
  Sex: Female
  Weight: 119.25 kg

DRUGS (17)
  1. ADBRY [Suspect]
     Active Substance: TRALOKINUMAB-LDRM
     Indication: Eczema
  2. DUPIXENT [Suspect]
     Active Substance: DUPILUMAB
  3. TRESIBA [Concomitant]
     Active Substance: INSULIN DEGLUDEC
  4. COZAAR [Concomitant]
     Active Substance: LOSARTAN POTASSIUM
  5. ATIVAN [Concomitant]
     Active Substance: LORAZEPAM
  6. SERTRALINE [Concomitant]
     Active Substance: SERTRALINE HYDROCHLORIDE
  7. DOXEPIN [Concomitant]
     Active Substance: DOXEPIN
  8. ADBRY [Concomitant]
     Active Substance: TRALOKINUMAB-LDRM
  9. Tacrolimus oint [Concomitant]
  10. Clobetasol oint [Concomitant]
  11. Thera-Tears [Concomitant]
  12. ROBAXIN [Concomitant]
     Active Substance: METHOCARBAMOL
  13. VOLTAREN [Concomitant]
     Active Substance: DICLOFENAC SODIUM
  14. VITAMIN D3 [Concomitant]
     Active Substance: CHOLECALCIFEROL
  15. MAGNESIUM [Concomitant]
     Active Substance: MAGNESIUM
  16. TYLENOL [Concomitant]
     Active Substance: ACETAMINOPHEN
  17. IBUPROFEN [Concomitant]
     Active Substance: IBUPROFEN

REACTIONS (6)
  - Blister [None]
  - Drug interaction [None]
  - Agitation [None]
  - Memory impairment [None]
  - Mood altered [None]
  - Feeling abnormal [None]

NARRATIVE: CASE EVENT DATE: 20240701
